FAERS Safety Report 4322378-X (Version None)
Quarter: 2004Q1

REPORT INFORMATION
  Report Type: 
  Country: None (occurrence: None)
  Receive Date: 20040319
  Receipt Date: 20040303
  Transmission Date: 20041129
  Serious: Yes (Death, Hospitalization)
  Sender: FDA-Public Use
  Company Number: 2004EU000492

PATIENT
  Age: 6 Year
  Sex: Male

DRUGS (5)
  1. PROGRAF [Suspect]
     Indication: INTESTINAL TRANSPLANT
  2. SIROLIMUS (SIROLIMUS) [Concomitant]
  3. METHYLPREDNISOLONE [Concomitant]
  4. SIMULECT [Concomitant]
  5. AZATHIOPRINE [Concomitant]

REACTIONS (10)
  - COMPLICATIONS OF TRANSPLANT SURGERY [None]
  - DRUG HYPERSENSITIVITY [None]
  - EPSTEIN-BARR VIRUS INFECTION [None]
  - HEPATIC ENZYME INCREASED [None]
  - HERPES VIRUS INFECTION [None]
  - LEUKOENCEPHALOPATHY [None]
  - MULTI-ORGAN FAILURE [None]
  - PNEUMONITIS [None]
  - PUPILS UNEQUAL [None]
  - RENAL FAILURE [None]
